FAERS Safety Report 9093279 (Version 1)
Quarter: 2013Q1

REPORT INFORMATION
  Report Type: Spontaneous
  Country: US (occurrence: US)
  Receive Date: 20130218
  Receipt Date: 20130218
  Transmission Date: 20140127
  Serious: Yes (Other)
  Sender: FDA-Public Use
  Company Number: US-009507513-1302USA007327

PATIENT
  Sex: Female

DRUGS (2)
  1. ZETIA [Suspect]
     Route: 048
  2. WELCHOL [Concomitant]

REACTIONS (2)
  - Myalgia [Not Recovered/Not Resolved]
  - Blood creatine phosphokinase increased [Not Recovered/Not Resolved]
